FAERS Safety Report 9753072 (Version 1)
Quarter: 2013Q4

REPORT INFORMATION
  Report Type: Spontaneous
  Country: US (occurrence: None)
  Receive Date: 20131211
  Receipt Date: 20131211
  Transmission Date: 20140711
  Serious: Yes (Other)
  Sender: FDA-Public Use
  Company Number: 2054838

PATIENT
  Age: 61 Year
  Sex: Male

DRUGS (7)
  1. CYTARABINE [Suspect]
     Indication: HODGKIN^S DISEASE
  2. DEXAMETHASONE [Suspect]
     Indication: HODGKIN^S DISEASE
  3. CISPLATIN [Suspect]
     Indication: HODGKIN^S DISEASE
  4. TENOFOVIR [Concomitant]
  5. EMTRICITABINE [Concomitant]
  6. DARUNAVIR [Concomitant]
  7. RITONAVIR [Concomitant]

REACTIONS (1)
  - Pancytopenia [None]
